FAERS Safety Report 6111741-2 (Version None)
Quarter: 2009Q1

REPORT INFORMATION
  Report Type: 
  Country: None (occurrence: None)
  Receive Date: 20090309
  Receipt Date: 20090216
  Transmission Date: 20090719
  Serious: Yes (Other)
  Sender: FDA-Public Use
  Company Number: 204094

PATIENT
  Age: 66 Year
  Sex: Female

DRUGS (5)
  1. PACLITAXEL [Suspect]
     Indication: BREAST CANCER METASTATIC
     Dosage: 100 MG/M2, WEEKLY
  2. (CYCLOPHOSPHAMIDE) [Concomitant]
  3. FLUOROURACIL [Concomitant]
  4. EPIRUBICIN [Concomitant]
  5. (TRASTUZUMAB) [Concomitant]

REACTIONS (5)
  - CAUSTIC INJURY [None]
  - ERYTHEMA [None]
  - INFLAMMATION [None]
  - PAIN [None]
  - SKIN DISORDER [None]
